FAERS Safety Report 9640306 (Version 1)
Quarter: 2013Q4

REPORT INFORMATION
  Report Type: Spontaneous
  Country: FR (occurrence: FR)
  Receive Date: 20131023
  Receipt Date: 20131023
  Transmission Date: 20140711
  Serious: Yes (Hospitalization)
  Sender: FDA-Public Use
  Company Number: FR-VERTEX PHARMACEUTICALS INC-2013-010543

PATIENT
  Age: 56 Year
  Sex: Male

DRUGS (6)
  1. INCIVO [Suspect]
     Indication: CHRONIC HEPATITIS C
     Dosage: 6 DF, QD
     Route: 048
     Dates: start: 201304
  2. INCIVO [Suspect]
     Dosage: UNK
     Route: 048
     Dates: start: 20130627
  3. COPEGUS [Suspect]
     Indication: CHRONIC HEPATITIS C
     Dosage: 1200 MG, QD
     Route: 065
     Dates: start: 201212
  4. COPEGUS [Suspect]
     Dosage: DOSAGE FORM: UNKNOWN
     Route: 065
     Dates: start: 20130627
  5. PEGASYS [Suspect]
     Indication: CHRONIC HEPATITIS C
     Dosage: 180 ?G, UNK
     Route: 065
     Dates: start: 201212
  6. PEGASYS [Suspect]
     Dosage: DOSAGE FORM: UNKNOWN
     Route: 065
     Dates: start: 20130627

REACTIONS (2)
  - Gastritis [Unknown]
  - Anaemia [Recovered/Resolved]
